FAERS Safety Report 7645431-1 (Version None)
Quarter: 2011Q3

REPORT INFORMATION
  Report Type: 
  Country: None (occurrence: None)
  Receive Date: 20110729
  Receipt Date: 20110725
  Transmission Date: 20111222
  Serious: Yes (Hospitalization)
  Sender: FDA-Public Use
  Company Number: CHPA2011US09813

PATIENT
  Age: 61 Year
  Sex: Female

DRUGS (29)
  1. NICOTINE [Suspect]
     Indication: SMOKING CESSATION THERAPY
     Dosage: 21 MG, DURING THE DAY
     Route: 062
     Dates: start: 20110725
  2. NICOTINE [Suspect]
     Dosage: UNK, UNK
     Route: 062
     Dates: start: 20100101
  3. SINGULAIR [Concomitant]
     Indication: ASTHMA
  4. DRUG THERAPY NOS [Concomitant]
     Indication: POLLAKIURIA
  5. ZOLPIDEM [Concomitant]
  6. NICOTINE [Suspect]
     Dosage: 21 MG, QD
     Route: 062
  7. EX-LAX ^NOVARTIS^ [Concomitant]
     Indication: CONSTIPATION
     Dosage: UNK, PRN
     Route: 048
  8. FAMOTIDINE [Concomitant]
  9. ALBUTEROL SULFATE AUTOHALER [Concomitant]
     Indication: HYPERSENSITIVITY
  10. PLAVIX [Concomitant]
     Indication: PROPHYLAXIS
  11. GLIMEPIRIDE [Concomitant]
     Indication: DIABETES MELLITUS
  12. LAMOTRIGINE [Concomitant]
     Indication: MOOD ALTERED
  13. SEROQUEL [Concomitant]
     Indication: DEPRESSION
     Dosage: 300 MG, QD
  14. SEROQUEL [Concomitant]
     Dosage: 200 MG
  15. DICYCLOMINE [Concomitant]
     Indication: ABDOMINAL PAIN
     Dosage: UNK, PRN
  16. MIRTAZAPINE [Concomitant]
     Indication: DEPRESSION
  17. ROPINIROLE [Concomitant]
     Indication: RESTLESS LEGS SYNDROME
  18. LOPERAMIDE HCL [Concomitant]
  19. LEVOTHYROXINE SODIUM [Concomitant]
     Indication: SUPPLEMENTATION THERAPY
  20. AMLODIPINE [Concomitant]
     Indication: HYPERTENSION
  21. LORAZEPAM [Concomitant]
     Indication: ANXIETY
  22. ADVAIR DISKUS 100/50 [Concomitant]
     Indication: ASTHMA
  23. DRUG THERAPY NOS [Concomitant]
     Indication: CONSTIPATION
  24. ASPIRIN [Concomitant]
     Indication: PROPHYLAXIS
     Dosage: 325 MG, QD
  25. DRUG THERAPY NOS [Concomitant]
     Indication: BLOOD CHOLESTEROL
  26. MELOXICAM [Concomitant]
     Indication: BACK DISORDER
  27. LISINOPRIL [Concomitant]
     Indication: BLOOD PRESSURE
  28. LOVAZA [Concomitant]
  29. METAMUCIL-2 [Concomitant]
     Indication: CONSTIPATION

REACTIONS (5)
  - FALL [None]
  - INSOMNIA [None]
  - TRANSIENT ISCHAEMIC ATTACK [None]
  - DEPRESSION [None]
  - DIZZINESS [None]
